FAERS Safety Report 16223157 (Version 1)
Quarter: 2019Q2

REPORT INFORMATION
  Report Type: Spontaneous
  Country: US (occurrence: US)
  Receive Date: 20190316
  Receipt Date: 20190316
  Transmission Date: 20190711
  Serious: Yes (Death, Hospitalization)
  Sender: FDA-Public Use
  Company Number: None

PATIENT
  Age: 31 Month
  Sex: Female
  Weight: 10.7 kg

DRUGS (5)
  1. VINCRISTINE SULFATE. [Suspect]
     Active Substance: VINCRISTINE SULFATE
     Dates: end: 20190208
  2. DEXAMETHASONE. [Suspect]
     Active Substance: DEXAMETHASONE
     Dates: end: 20190205
  3. MITOXANTRONE HYDROCHLORIDE. [Suspect]
     Active Substance: MITOXANTRONE HYDROCHLORIDE
     Dates: end: 20190119
  4. METHOTREXATE. [Suspect]
     Active Substance: METHOTREXATE
     Dates: end: 20190124
  5. ONCASPAR [Suspect]
     Active Substance: PEGASPARGASE
     Dates: end: 20190203

REACTIONS (5)
  - Cardiac failure congestive [None]
  - Bone pain [None]
  - Febrile neutropenia [None]
  - Therapy non-responder [None]
  - Abdominal distension [None]

NARRATIVE: CASE EVENT DATE: 20190309
